FAERS Safety Report 11491097 (Version 1)
Quarter: 2015Q3

REPORT INFORMATION
  Report Type: Spontaneous
  Country: US (occurrence: US)
  Receive Date: 20150910
  Receipt Date: 20150910
  Transmission Date: 20151125
  Serious: No
  Sender: FDA-Public Use
  Company Number: US-JNJFOC-20141118245

PATIENT
  Sex: Female

DRUGS (1)
  1. IMODIUM [Suspect]
     Active Substance: LOPERAMIDE HYDROCHLORIDE
     Indication: RECTAL CANCER
     Route: 065

REACTIONS (3)
  - Off label use [Unknown]
  - Intentional product use issue [Unknown]
  - Therapeutic response unexpected [Unknown]
